FAERS Safety Report 13628532 (Version 1)
Quarter: 2017Q2

REPORT INFORMATION
  Report Type: Spontaneous
  Country: US (occurrence: US)
  Receive Date: 20170608
  Receipt Date: 20170608
  Transmission Date: 20170830
  Serious: Yes (Disabling, Other)
  Sender: FDA-Public Use
  Company Number: US-ALVOGEN-2017-ALVOGEN-092170

PATIENT
  Age: 47 Year
  Sex: Female
  Weight: 58.92 kg

DRUGS (2)
  1. ATENOLOL. [Suspect]
     Active Substance: ATENOLOL
     Indication: PRODUCT USED FOR UNKNOWN INDICATION
     Route: 048
     Dates: start: 20170206, end: 20170206
  2. METOPROLOL. [Suspect]
     Active Substance: METOPROLOL
     Indication: MYOCARDIAL INFARCTION
     Route: 048
     Dates: start: 201612, end: 20170206

REACTIONS (32)
  - Hypoaesthesia [Unknown]
  - Fluid retention [Not Recovered/Not Resolved]
  - Abdominal distension [Unknown]
  - Throat tightness [Recovering/Resolving]
  - Hypersensitivity [Unknown]
  - Impaired driving ability [Unknown]
  - Urinary hesitation [Recovering/Resolving]
  - Constipation [Unknown]
  - Headache [Unknown]
  - Dysstasia [Unknown]
  - Impaired work ability [Unknown]
  - Aphthous ulcer [Unknown]
  - Abdominal pain upper [Unknown]
  - Food allergy [Unknown]
  - Alopecia [Unknown]
  - Memory impairment [Unknown]
  - Pain [Unknown]
  - Dry skin [Unknown]
  - Personality change [Unknown]
  - Vision blurred [Unknown]
  - Dry mouth [Unknown]
  - Dyspnoea [Unknown]
  - Fatigue [Unknown]
  - Blood glucose decreased [Unknown]
  - Paraesthesia [Unknown]
  - Flatulence [Unknown]
  - Weight increased [Not Recovered/Not Resolved]
  - Dizziness [Unknown]
  - Feeling abnormal [Unknown]
  - Muscle atrophy [Unknown]
  - Exercise lack of [Unknown]
  - Seasonal allergy [Unknown]

NARRATIVE: CASE EVENT DATE: 2017
